FAERS Safety Report 4804816-9 (Version None)
Quarter: 2005Q4

REPORT INFORMATION
  Report Type: 
  Country: None (occurrence: None)
  Receive Date: 20051020
  Receipt Date: 20050928
  Transmission Date: 20060501
  Serious: Yes (Hospitalization, Other)
  Sender: FDA-Public Use
  Company Number: PHBS2005JP14330

PATIENT
  Age: 50 Year
  Sex: Male

DRUGS (5)
  1. CYCLOSPORINE [Suspect]
     Indication: GLOMERULONEPHRITIS MEMBRANOUS
     Dosage: 2 MG/KG/D
     Route: 065
     Dates: start: 20020101, end: 20040101
  2. CYCLOSPORINE [Suspect]
     Dosage: 1-2 MG/KG/D
     Route: 065
  3. ADRENAL CORTICAL EXTRACT [Suspect]
     Indication: GLOMERULONEPHRITIS MEMBRANOUS
     Dosage: 40 MG/D
     Route: 065
     Dates: start: 20020101, end: 20030101
  4. MIZORIBINE [Concomitant]
  5. STEROIDS NOS [Suspect]

REACTIONS (7)
  - BLOOD CREATININE INCREASED [None]
  - CONDITION AGGRAVATED [None]
  - DIABETES MELLITUS [None]
  - INTRAOCULAR PRESSURE INCREASED [None]
  - NEPHROPATHY TOXIC [None]
  - NEPHROTIC SYNDROME [None]
  - RENAL TUBULAR DISORDER [None]
